FAERS Safety Report 8308796-3 (Version None)
Quarter: 2012Q2

REPORT INFORMATION
  Report Type: 
  Country: None (occurrence: None)
  Receive Date: 20120424
  Receipt Date: 20110407
  Transmission Date: 20120825
  Serious: Yes (Other)
  Sender: FDA-Public Use
  Company Number: US-TEVA-2010004225

PATIENT
  Sex: Female

DRUGS (2)
  1. CYMBALTA [Concomitant]
     Route: 048
  2. PROVIGIL [Suspect]
     Indication: SLEEP APNOEA SYNDROME
     Route: 048

REACTIONS (2)
  - DEPRESSION [None]
  - FEELING OF DESPAIR [None]
